FAERS Safety Report 15510638 (Version 1)
Quarter: 2018Q4

REPORT INFORMATION
  Report Type: Spontaneous
  Country: US (occurrence: US)
  Receive Date: 20181010
  Receipt Date: 20181010
  Transmission Date: 20190205
  Serious: Yes (Hospitalization)
  Sender: FDA-Public Use
  Company Number: None

PATIENT
  Age: 35 Year
  Sex: Female

DRUGS (2)
  1. CAPECITABINE 150 MG [Suspect]
     Active Substance: CAPECITABINE
     Indication: RECTAL CANCER
     Dosage: ?          OTHER FREQUENCY:BID D1-14 OF 21;?
     Route: 048
     Dates: start: 20180308
  2. CAPECITABINE 500 MG TAB [Suspect]
     Active Substance: CAPECITABINE
     Indication: RECTAL CANCER
     Dosage: ?          OTHER FREQUENCY:BID D1-14 OF 21;?
     Route: 048
     Dates: start: 20180308

REACTIONS (2)
  - Lymphadenectomy [None]
  - Product dose omission [None]

NARRATIVE: CASE EVENT DATE: 20180914
